FAERS Safety Report 23772907 (Version 1)
Quarter: 2024Q2

REPORT INFORMATION
  Report Type: Other
  Country: US (occurrence: None)
  Receive Date: 20240423
  Receipt Date: 20240423
  Transmission Date: 20240716
  Serious: Yes (Other)
  Sender: FDA-Public Use
  Company Number: US-ROCHE-2330811

PATIENT
  Age: 61 Year
  Sex: Female
  Weight: 53.572 kg

DRUGS (9)
  1. OCREVUS [Suspect]
     Active Substance: OCRELIZUMAB
     Indication: Relapsing-remitting multiple sclerosis
     Dosage: DATE OF TREATMENT-16/APR/2018, 01/OCT/2018, 01/MAR/2019, 09/MAR/2020, 16/MAR/2021, 30/NOV/2023
     Route: 042
     Dates: start: 20180301
  2. OCREVUS [Suspect]
     Active Substance: OCRELIZUMAB
     Dosage: DATE OF TREATMENT-16/APR/2018, 01/OCT/2018, 01/MAR/2019, 04/MAR2019, 09/MAR/2020, 16/MAR/2021
     Route: 042
     Dates: start: 20181001
  3. BACTRIM [Suspect]
     Active Substance: SULFAMETHOXAZOLE\TRIMETHOPRIM
     Indication: Product used for unknown indication
     Route: 065
  4. CLINDAMYCIN [Suspect]
     Active Substance: CLINDAMYCIN
     Indication: Product used for unknown indication
     Route: 065
  5. ATORVASTATIN [Concomitant]
     Active Substance: ATORVASTATIN
  6. CYMBALTA [Concomitant]
     Active Substance: DULOXETINE HYDROCHLORIDE
  7. ESTRADIOL [Concomitant]
     Active Substance: ESTRADIOL
  8. ADDERALL [Concomitant]
     Active Substance: AMPHETAMINE ASPARTATE\AMPHETAMINE SULFATE\DEXTROAMPHETAMINE SACCHARATE\DEXTROAMPHETAMINE SULFATE
  9. DIAZEPAM [Concomitant]
     Active Substance: DIAZEPAM

REACTIONS (18)
  - Urinary tract infection [Recovering/Resolving]
  - Pain in jaw [Recovered/Resolved]
  - Toothache [Recovered/Resolved]
  - Off label use [Unknown]
  - Headache [Unknown]
  - Oral pain [Unknown]
  - Fatigue [Not Recovered/Not Resolved]
  - Gingival pain [Unknown]
  - Oropharyngeal pain [Recovering/Resolving]
  - Aphonia [Not Recovered/Not Resolved]
  - Pyrexia [Recovering/Resolving]
  - Upper respiratory tract infection [Recovering/Resolving]
  - Urine odour abnormal [Recovered/Resolved]
  - Back pain [Not Recovered/Not Resolved]
  - Brain fog [Not Recovered/Not Resolved]
  - Complex regional pain syndrome [Not Recovered/Not Resolved]
  - Drug hypersensitivity [Not Recovered/Not Resolved]
  - Kidney infection [Recovering/Resolving]

NARRATIVE: CASE EVENT DATE: 20190917
